FAERS Safety Report 13429115 (Version 3)
Quarter: 2019Q1

REPORT INFORMATION
  Report Type: Spontaneous
  Country: IL (occurrence: IL)
  Receive Date: 20170411
  Receipt Date: 20190315
  Transmission Date: 20190417
  Serious: Yes (Hospitalization, Other)
  Sender: FDA-Public Use
  Company Number: IL-SHIRE-IL201707915

PATIENT
  Age: 7 Decade
  Sex: Female

DRUGS (1)
  1. VPRIV [Suspect]
     Active Substance: VELAGLUCERASE ALFA
     Indication: GAUCHER^S DISEASE
     Dosage: 1200 IU (3 VIALS), 1X/2WKS
     Route: 041

REACTIONS (4)
  - Patella fracture [Unknown]
  - Fall [Unknown]
  - Haemoglobin abnormal [Unknown]
  - Pain [Unknown]

NARRATIVE: CASE EVENT DATE: 201704
